FAERS Safety Report 9317656 (Version 1)
Quarter: 2012Q4

REPORT INFORMATION
  Report Type: Spontaneous
  Country: DE (occurrence: None)
  Receive Date: 20121219
  Receipt Date: 20121219
  Transmission Date: 20130627
  Serious: Yes (Hospitalization)
  Sender: FDA-Public Use
  Company Number: VAL_01180_2012

PATIENT
  Sex: Female
  Weight: 81 kg

DRUGS (6)
  1. METOPROLOL (METOPROLOL-METOPROLOL TARTRATE) [Suspect]
     Indication: HYPERTENSION
     Dosage: (152/5, 1/3 0-0-1/3)
     Dates: start: 1995, end: 20110708
  2. ALISKIREN W/HYDROCHLOROTHIAZIDE [Suspect]
     Indication: HYPERTENSION
     Dosage: (150/25 mg [daily] Regimen #1 Oral)
     Route: 048
     Dates: start: 20110712
  3. VAA489A VAL_AML+-VALSARTAN AMLODIPINE [Suspect]
     Indication: HYPERTENSION
     Dosage: (160 / 5 mg [daily] Regimen #1 Oral)
     Route: 048
     Dates: start: 20120712
  4. ASPIRIN PROTECT [Concomitant]
  5. SIMVAHEXAL [Concomitant]
  6. GLIMEPIRIDE [Concomitant]

REACTIONS (1)
  - Sinus tachycardia [None]
